FAERS Safety Report 8972966 (Version 1)
Quarter: 2012Q4

REPORT INFORMATION
  Report Type: Report from Study
  Country: US (occurrence: US)
  Receive Date: 20121219
  Receipt Date: 20121219
  Transmission Date: 20130627
  Serious: Yes (Other)
  Sender: FDA-Public Use
  Company Number: US-ASTELLAS-2012US012315

PATIENT
  Sex: Female

DRUGS (4)
  1. ERLOTINIB TABLET [Suspect]
     Dosage: 150 mg, UID/QD
     Route: 048
     Dates: end: 20121213
  2. PREDNISONE [Concomitant]
     Indication: PRODUCT USED FOR UNKNOWN INDICATION
     Dosage: UNK
     Route: 065
  3. DOXYCYCLINE [Concomitant]
     Indication: PRODUCT USED FOR UNKNOWN INDICATION
     Dosage: UNK
     Route: 065
  4. ERLOTINIB TABLET [Suspect]
     Indication: LUNG NEOPLASM MALIGNANT
     Dosage: 150 mg, UID/QD
     Route: 048
     Dates: start: 20091006, end: 20120312

REACTIONS (4)
  - Fungal skin infection [Unknown]
  - Alopecia [Unknown]
  - Dry skin [Unknown]
  - Rash [Unknown]
